FAERS Safety Report 5204340-8 (Version None)
Quarter: 2007Q1

REPORT INFORMATION
  Report Type: 
  Country: None (occurrence: None)
  Receive Date: 20070110
  Receipt Date: 20060221
  Transmission Date: 20070707
  Serious: No
  Sender: FDA-Public Use
  Company Number: US-BRISTOL-MYERS SQUIBB COMPANY-13290762

PATIENT
  Age: 54 Year
  Sex: Female
  Weight: 104 kg

DRUGS (11)
  1. ABILIFY [Suspect]
     Indication: BIPOLAR DISORDER
     Route: 048
  2. LITHIUM CARBONATE [Concomitant]
     Dates: start: 19990101
  3. LISINOPRIL [Concomitant]
  4. RANITIDINE [Concomitant]
  5. PROZAC [Concomitant]
  6. NOVOLIN 50/50 [Concomitant]
     Dates: start: 19930101
  7. ZYPREXA [Concomitant]
  8. MAXZIDE [Concomitant]
  9. SYNTHROID [Concomitant]
  10. VISTARIL [Concomitant]
  11. PREMARIN [Concomitant]

REACTIONS (1)
  - DRUG SCREEN FALSE POSITIVE [None]
